FAERS Safety Report 4885414-8 (Version None)
Quarter: 2006Q1

REPORT INFORMATION
  Report Type: 
  Country: None (occurrence: None)
  Receive Date: 20060119
  Receipt Date: 20060111
  Transmission Date: 20060701
  Serious: Yes (Other)
  Sender: FDA-Public Use
  Company Number: BE-ABBOTT-06P-013-0321872-00

PATIENT
  Sex: Female
  Weight: 63 kg

DRUGS (13)
  1. HUMIRA [Suspect]
     Indication: RHEUMATOID ARTHRITIS
     Route: 058
     Dates: start: 20040810, end: 20051026
  2. METHOTREXATE [Concomitant]
     Indication: RHEUMATOID ARTHRITIS
  3. MOXIFLOXACIN HYDROCHLORIDE [Concomitant]
     Indication: BRONCHITIS
     Dates: start: 20050501
  4. CLARITHROMYCIN [Concomitant]
     Indication: BRONCHITIS
     Dates: start: 20050801
  5. PIRACETAM [Concomitant]
     Indication: DRUG USE FOR UNKNOWN INDICATION
  6. SIPRALEXA [Concomitant]
     Indication: DRUG USE FOR UNKNOWN INDICATION
  7. ALPRAZOLAM [Concomitant]
     Indication: DRUG USE FOR UNKNOWN INDICATION
  8. DIHYDROERGOTAMINE MESYLATE [Concomitant]
     Indication: DRUG USE FOR UNKNOWN INDICATION
  9. STEOVIT D3 [Concomitant]
     Indication: DRUG USE FOR UNKNOWN INDICATION
  10. ELTHYRONE 50 [Concomitant]
     Indication: DRUG USE FOR UNKNOWN INDICATION
  11. ASPIRIN [Concomitant]
     Indication: DRUG USE FOR UNKNOWN INDICATION
  12. CLOMIPRAMINE HYDROCHLORIDE [Concomitant]
     Indication: DRUG USE FOR UNKNOWN INDICATION
  13. ESTRADIOL INJ [Concomitant]
     Indication: DRUG USE FOR UNKNOWN INDICATION

REACTIONS (4)
  - BACILLUS INFECTION [None]
  - COUGH [None]
  - LUNG INFILTRATION [None]
  - PYREXIA [None]
